FAERS Safety Report 15591167 (Version 1)
Quarter: 2018Q4

REPORT INFORMATION
  Report Type: Spontaneous
  Country: IN (occurrence: IN)
  Receive Date: 20181106
  Receipt Date: 20181106
  Transmission Date: 20190205
  Serious: Yes (Other)
  Sender: FDA-Public Use
  Company Number: IN-LUPIN HEALTHCARE (UK) LIMITED-2018-07574

PATIENT
  Age: 18 Year
  Sex: Female

DRUGS (1)
  1. EPILIVE FILM C.TABS 500 MG [Suspect]
     Active Substance: LEVETIRACETAM
     Indication: PROPHYLAXIS
     Dosage: 500 MG, BID
     Route: 048
     Dates: start: 2017, end: 20181024

REACTIONS (3)
  - Asthenia [Not Recovered/Not Resolved]
  - Malaise [Unknown]
  - Epilepsy [Unknown]

NARRATIVE: CASE EVENT DATE: 20181023
